FAERS Safety Report 17221377 (Version 1)
Quarter: 2020Q1

REPORT INFORMATION
  Report Type: Spontaneous
  Country: US (occurrence: US)
  Receive Date: 20200101
  Receipt Date: 20200101
  Transmission Date: 20200409
  Serious: Yes (Death)
  Sender: FDA-Public Use
  Company Number: US-ROCHE-2510131

PATIENT
  Age: 84 Year
  Sex: Male

DRUGS (12)
  1. METOPROLOL TARTRATE. [Concomitant]
     Active Substance: METOPROLOL TARTRATE
     Route: 065
     Dates: start: 20151015, end: 20191207
  2. IRON [Concomitant]
     Active Substance: IRON
     Route: 065
     Dates: start: 20151015, end: 20191207
  3. PROAIR HFA [Concomitant]
     Active Substance: ALBUTEROL SULFATE
     Route: 065
     Dates: start: 20151015, end: 20191207
  4. ESBRIET [Suspect]
     Active Substance: PIRFENIDONE
     Indication: IDIOPATHIC PULMONARY FIBROSIS
     Route: 048
     Dates: start: 20151016, end: 20191207
  5. PRILOSEC [Concomitant]
     Active Substance: OMEPRAZOLE MAGNESIUM
     Route: 065
     Dates: start: 20151015, end: 20191207
  6. PANTOPRAZOLE [Concomitant]
     Active Substance: PANTOPRAZOLE
     Route: 065
     Dates: start: 20151015, end: 20191207
  7. SPIRIVA [Concomitant]
     Active Substance: TIOTROPIUM BROMIDE MONOHYDRATE
     Route: 065
     Dates: start: 20151015, end: 20191207
  8. FUROSEMIDE. [Concomitant]
     Active Substance: FUROSEMIDE
     Route: 065
     Dates: start: 20151015, end: 20191207
  9. ESBRIET [Suspect]
     Active Substance: PIRFENIDONE
     Indication: IDIOPATHIC PULMONARY FIBROSIS
     Route: 048
     Dates: start: 20151015, end: 20191207
  10. ESBRIET [Suspect]
     Active Substance: PIRFENIDONE
     Route: 048
     Dates: start: 20151016, end: 20191207
  11. LIPITOR [Concomitant]
     Active Substance: ATORVASTATIN CALCIUM
     Route: 065
     Dates: start: 20151015, end: 20191207
  12. GABAPENTIN. [Concomitant]
     Active Substance: GABAPENTIN
     Route: 065
     Dates: start: 20151015, end: 20191207

REACTIONS (1)
  - Death [Fatal]

NARRATIVE: CASE EVENT DATE: 20191207
